FAERS Safety Report 10100240 (Version 2)
Quarter: 2014Q2

REPORT INFORMATION
  Report Type: Spontaneous
  Country: US (occurrence: US)
  Receive Date: 20140423
  Receipt Date: 20140501
  Transmission Date: 20141212
  Serious: Yes (Death, Life-Threatening)
  Sender: FDA-Public Use
  Company Number: US-009507513-1404USA011157

PATIENT
  Sex: 0

DRUGS (2)
  1. EPTIFIBATIDE [Suspect]
     Indication: THROMBOSIS
     Dosage: UNK
  2. HEPARIN [Suspect]
     Indication: THROMBOSIS
     Dosage: UNK

REACTIONS (2)
  - Embolism [Fatal]
  - Subdural haematoma [Fatal]
